FAERS Safety Report 4331189-0 (Version None)
Quarter: 2004Q1

REPORT INFORMATION
  Report Type: 
  Country: None (occurrence: None)
  Receive Date: 20040331
  Receipt Date: 20040319
  Transmission Date: 20041129
  Serious: Yes (Life-Threatening)
  Sender: FDA-Public Use
  Company Number: MK200403-0178-1

PATIENT
  Sex: Male

DRUGS (1)
  1. OPTIRAY 320 [Suspect]
     Indication: COMPUTERISED TOMOGRAM
     Dosage: IV, ONCE
     Route: 042
     Dates: start: 20040316, end: 20040316

REACTIONS (5)
  - AIR EMBOLISM [None]
  - ARRHYTHMIA [None]
  - IATROGENIC INJURY [None]
  - MEDICATION ERROR [None]
  - RESPIRATORY DISTRESS [None]
